FAERS Safety Report 9440978 (Version 2)
Quarter: 2013Q3

REPORT INFORMATION
  Report Type: Spontaneous
  Country: US (occurrence: None)
  Receive Date: 20130801
  Receipt Date: 20130822
  Transmission Date: 20140515
  Serious: Yes (Hospitalization)
  Sender: FDA-Public Use
  Company Number: EUS-2013-00424

PATIENT
  Age: 3 Year
  Sex: Male

DRUGS (7)
  1. ERWINAZE [Suspect]
     Indication: ACUTE LYMPHOCYTIC LEUKAEMIA
     Dosage: 17,500 ON MONDAY, WEDNESDAY, AND FRIDAY (6 DOSES) (17,500), INTRAVENOUS (NOT OTHERWISE SPECIFIED)?
     Route: 042
     Dates: start: 20130311, end: 20130322
  2. VINCRISTINE [Concomitant]
  3. DOXORUBICIN (DOXORUBICIN) (DOXORUBICIN) [Concomitant]
  4. DEXAMETHASONE (DEXAMETHASONE) (DEXAMETHASONE) [Concomitant]
  5. METHOTREXATE (METHOTREXATE SODIUM) (METHOTREXATE SODIUM) [Concomitant]
  6. ONDANSETRON (ONDANSETRON) (ONDANSETRON) [Concomitant]
  7. DIPHENHYDRAMINE (DIPHENHYDRAMINE HYDROCHLORIDE) (DIPHENHYDRAMINE HYDROCHLORIDE) [Concomitant]

REACTIONS (6)
  - Vomiting [None]
  - Chills [None]
  - Skin discolouration [None]
  - Malaise [None]
  - Flushing [None]
  - Hypersensitivity [None]
